FAERS Safety Report 12828207 (Version 2)
Quarter: 2017Q3

REPORT INFORMATION
  Report Type: Report from Study
  Country: None (occurrence: BR)
  Receive Date: 20161007
  Receipt Date: 20170706
  Transmission Date: 20171127
  Serious: Yes (Other)
  Sender: FDA-Public Use
  Company Number: BR-ABBVIE-16P-020-1747523-00

PATIENT
  Sex: Female
  Weight: 65 kg

DRUGS (1)
  1. SYNTHROID [Suspect]
     Active Substance: LEVOTHYROXINE SODIUM
     Indication: HYPOTHYROIDISM
     Dosage: 50 MICROGRAM, MORNING (FASTING)
     Route: 048
     Dates: start: 2002

REACTIONS (4)
  - Breast enlargement [Unknown]
  - Phlebitis [Recovered/Resolved]
  - Pyrexia [Unknown]
  - Endometriosis [Recovered/Resolved]
